FAERS Safety Report 15884684 (Version 1)
Quarter: 2019Q1

REPORT INFORMATION
  Report Type: Report from Study
  Country: DE (occurrence: DE)
  Receive Date: 20190129
  Receipt Date: 20190129
  Transmission Date: 20190417
  Serious: Yes (Hospitalization, Other)
  Sender: FDA-Public Use
  Company Number: DE-BAYER-2018-192008

PATIENT
  Age: 29 Year
  Sex: Male

DRUGS (1)
  1. BETAFERON [Suspect]
     Active Substance: INTERFERON BETA-1B
     Indication: MULTIPLE SCLEROSIS
     Dosage: 250 ?G, QOD
     Route: 058
     Dates: start: 20181004

REACTIONS (6)
  - Injection site reaction [Not Recovered/Not Resolved]
  - Dyspnoea [Unknown]
  - Influenza like illness [Recovered/Resolved]
  - Cardiac failure [Recovered/Resolved]
  - Chills [Recovered/Resolved]
  - Dizziness [Unknown]

NARRATIVE: CASE EVENT DATE: 20181004
